FAERS Safety Report 9691955 (Version 2)
Quarter: 2013Q4

REPORT INFORMATION
  Report Type: Spontaneous
  Country: US (occurrence: US)
  Receive Date: 20131118
  Receipt Date: 20131128
  Transmission Date: 20140711
  Serious: Yes (Hospitalization)
  Sender: FDA-Public Use
  Company Number: US-AMGEN-USASP2013080434

PATIENT
  Age: 73 Year
  Sex: Female

DRUGS (1)
  1. ENBREL [Suspect]
     Indication: RHEUMATOID ARTHRITIS
     Dosage: 50 MG, QWK
     Route: 065
     Dates: start: 20050701

REACTIONS (4)
  - Arthralgia [Recovered/Resolved]
  - Mobility decreased [Not Recovered/Not Resolved]
  - Postoperative wound infection [Recovered/Resolved]
  - Pain [Recovered/Resolved]
